FAERS Safety Report 6979182-3 (Version None)
Quarter: 2010Q3

REPORT INFORMATION
  Report Type: 
  Country: None (occurrence: None)
  Receive Date: 20100913
  Receipt Date: 20100907
  Transmission Date: 20110219
  Serious: Yes (Death, Hospitalization, Other)
  Sender: FDA-Public Use
  Company Number: PHHY2010JP29157

PATIENT
  Sex: Male

DRUGS (17)
  1. AFINITOR [Suspect]
     Indication: RENAL CELL CARCINOMA
     Dosage: 10 MG DAILY
     Route: 048
     Dates: start: 20100326, end: 20100417
  2. AFINITOR [Suspect]
     Indication: METASTATIC RENAL CELL CARCINOMA
  3. OXYCONTIN [Concomitant]
     Indication: METASTATIC RENAL CELL CARCINOMA
     Dosage: 400 MG, UNK
     Route: 048
     Dates: start: 20091009
  4. SUNITINIB MALATE [Concomitant]
     Indication: METASTATIC RENAL CELL CARCINOMA
     Dosage: 50 MG
     Route: 048
     Dates: start: 20091005, end: 20091102
  5. GEMCITABINE HCL [Concomitant]
     Indication: METASTATIC RENAL CELL CARCINOMA
     Dosage: 800 MG, UNK
     Route: 042
     Dates: start: 20100115, end: 20100226
  6. CARBOPLATIN [Concomitant]
     Indication: METASTATIC RENAL CELL CARCINOMA
     Dosage: 150 MG, UNK
     Route: 042
     Dates: start: 20100115, end: 20100212
  7. ZOLEDRONIC ACID [Concomitant]
     Indication: METASTATIC RENAL CELL CARCINOMA
     Dosage: 4 MG, UNK
     Route: 042
     Dates: start: 20091005
  8. GASTER D [Concomitant]
     Dosage: 20 MG, UNK
     Route: 048
     Dates: start: 20091014
  9. DECADRON [Concomitant]
     Indication: METASTATIC RENAL CELL CARCINOMA
     Dosage: 1 MG, UNK
     Route: 048
     Dates: start: 20091126
  10. GABAPENTIN [Concomitant]
     Indication: METASTATIC RENAL CELL CARCINOMA
     Dosage: 600 MG, UNK
     Route: 048
     Dates: start: 20091212
  11. MAGLAX [Concomitant]
     Dosage: 1980 MG, UNK
     Route: 048
     Dates: start: 20090911
  12. SEROQUEL [Concomitant]
     Dosage: 50 MG, UNK
     Route: 048
  13. LASIX [Concomitant]
     Indication: METASTATIC RENAL CELL CARCINOMA
     Dosage: 40 MG, UNK
     Route: 048
     Dates: start: 20091217
  14. RESLIN [Concomitant]
     Dosage: 50 MG, UNK
     Route: 048
     Dates: start: 20100113
  15. AMOBAN [Concomitant]
     Dosage: 7.5 MG, UNK
     Route: 048
     Dates: start: 20100120
  16. FERROMIA [Concomitant]
     Indication: METASTATIC RENAL CELL CARCINOMA
     Dosage: 2 DF, UNK
     Route: 048
     Dates: start: 20100204
  17. GASMOTIN [Concomitant]
     Dosage: 3 DF, UNK
     Route: 048
     Dates: start: 20100217

REACTIONS (7)
  - ASTHENIA [None]
  - CANCER PAIN [None]
  - INTERSTITIAL LUNG DISEASE [None]
  - LUNG DISORDER [None]
  - MALIGNANT NEOPLASM PROGRESSION [None]
  - PNEUMONIA BACTERIAL [None]
  - RESPIRATORY DISORDER [None]
